FAERS Safety Report 16656403 (Version 1)
Quarter: 2019Q3

REPORT INFORMATION
  Report Type: Report from Study
  Country: US (occurrence: US)
  Receive Date: 20190801
  Receipt Date: 20190801
  Transmission Date: 20191004
  Serious: Yes (Hospitalization)
  Sender: FDA-Public Use
  Company Number: US-PACIRA-201400244

PATIENT
  Age: 20 Year
  Sex: Male

DRUGS (1)
  1. DEPOCYT [Suspect]
     Active Substance: CYTARABINE

REACTIONS (2)
  - Bacterial sepsis [None]
  - Febrile neutropenia [None]
